FAERS Safety Report 24302742 (Version 2)
Quarter: 2024Q3

REPORT INFORMATION
  Report Type: Spontaneous
  Country: US (occurrence: US)
  Receive Date: 20240910
  Receipt Date: 20240917
  Transmission Date: 20241017
  Serious: No
  Sender: SANOFI AVENTIS
  Company Number: US-SANOFI-02193161

PATIENT
  Age: 20 Year
  Sex: Female

DRUGS (2)
  1. TZIELD [Suspect]
     Active Substance: TEPLIZUMAB-MZWV
     Indication: Type 1 diabetes mellitus
     Dosage: 745 UG, QD
     Route: 042
     Dates: start: 20240819, end: 20240820
  2. TZIELD [Suspect]
     Active Substance: TEPLIZUMAB-MZWV
     Dosage: 373 UG, 1X
     Route: 042
     Dates: start: 20240821, end: 20240821

REACTIONS (5)
  - Yersinia infection [Unknown]
  - Vomiting [Unknown]
  - Diarrhoea [Unknown]
  - Bacterial infection [Unknown]
  - Feeling hot [Unknown]

NARRATIVE: CASE EVENT DATE: 20240801
